FAERS Safety Report 8842257 (Version 1)
Quarter: 2012Q4

REPORT INFORMATION
  Report Type: 
  Country: US (occurrence: US)
  Receive Date: 20121016
  Receipt Date: 20121016
  Transmission Date: 20130627
  Serious: Yes (Hospitalization)
  Sender: FDA-Public Use
  Company Number: US-B.I. PHARMACEUTICALS,INC./RIDGEFIELD-2012-BP-25159BP

PATIENT
  Age: 68 None
  Sex: Female
  Weight: 68 kg

DRUGS (4)
  1. SPIRIVA [Suspect]
     Indication: BRONCHITIS CHRONIC
     Dosage: 18 mcg
     Route: 055
     Dates: start: 201112
  2. TYLENOL [Concomitant]
     Indication: PAIN MANAGEMENT
     Route: 048
     Dates: start: 20121008
  3. TYLENOL [Concomitant]
     Indication: ENDODONTIC PROCEDURE
  4. CELEBREX [Concomitant]
     Indication: ARTHRITIS
     Dosage: 500 mg
     Route: 048
     Dates: start: 2006

REACTIONS (4)
  - Rib fracture [Recovered/Resolved]
  - Dyspnoea [Recovered/Resolved]
  - Fall [Recovered/Resolved]
  - Endodontic procedure [Recovered/Resolved]
